FAERS Safety Report 9739552 (Version 3)
Quarter: 2014Q2

REPORT INFORMATION
  Report Type: Spontaneous
  Country: JP (occurrence: JP)
  Receive Date: 20131209
  Receipt Date: 20140415
  Transmission Date: 20141212
  Serious: Yes (Hospitalization, Other)
  Sender: FDA-Public Use
  Company Number: JP-PFIZER INC-2013349424

PATIENT
  Age: 70 Year
  Sex: Male
  Weight: 72 kg

DRUGS (14)
  1. ZOSYN [Suspect]
     Indication: PELVIC INFLAMMATORY DISEASE
     Dosage: 9 G, DAILY
     Route: 041
     Dates: start: 20091218, end: 20091221
  2. ZOSYN [Suspect]
     Indication: URINARY TRACT INFECTION
  3. CEFOPERAZONE SODIUM/SULBACTAM SODIUM [Suspect]
     Indication: URINARY TRACT INFECTION
     Dosage: 2 G, DAILY
     Route: 042
  4. MEROPEN [Suspect]
     Indication: PELVIC INFLAMMATORY DISEASE
     Dosage: 1 G, DAILY
     Route: 041
     Dates: start: 20091222, end: 20091224
  5. MEROPEN [Suspect]
     Indication: ANTIBIOTIC THERAPY
  6. BLUBATOSINE [Suspect]
     Indication: PELVIC INFLAMMATORY DISEASE
     Dosage: 200 MG, DAILY
     Route: 041
     Dates: start: 20091228, end: 20091230
  7. BLUBATOSINE [Suspect]
     Indication: ANTIBIOTIC THERAPY
  8. TARGOCID [Suspect]
     Indication: PELVIC INFLAMMATORY DISEASE
     Dosage: 800 MG, DAILY
     Route: 041
     Dates: start: 20100101, end: 20100107
  9. TARGOCID [Suspect]
     Indication: ANTIBIOTIC THERAPY
  10. MAXIPIME [Suspect]
     Indication: PELVIC INFLAMMATORY DISEASE
     Dosage: 2 G, DAILY
     Route: 041
     Dates: start: 20100101, end: 20100107
  11. MAXIPIME [Suspect]
     Indication: ANTIBIOTIC THERAPY
  12. FERROMIA [Concomitant]
     Indication: IRON DEFICIENCY ANAEMIA
     Dosage: 150 MG, DAILY
     Route: 048
  13. GEMCITABINE [Concomitant]
     Indication: TRANSITIONAL CELL CARCINOMA
     Dosage: 1600 MG, UNK
  14. CISPLATIN [Concomitant]
     Indication: TRANSITIONAL CELL CARCINOMA
     Dosage: 120 MG, UNK

REACTIONS (1)
  - Henoch-Schonlein purpura [Recovered/Resolved]
